FAERS Safety Report 19971731 (Version 1)
Quarter: 2021Q4

REPORT INFORMATION
  Report Type: Report from Study
  Country: CA (occurrence: CA)
  Receive Date: 20211019
  Receipt Date: 20211019
  Transmission Date: 20220303
  Serious: Yes (Other)
  Sender: FDA-Public Use
  Company Number: CA-PFIZER INC-202101325721

PATIENT
  Age: 63 Year
  Sex: Female

DRUGS (5)
  1. VERAPAMIL HCL [Suspect]
     Active Substance: VERAPAMIL HYDROCHLORIDE
     Indication: Migraine
     Dosage: UNK
     Route: 065
  2. TOPIRAMATE [Suspect]
     Active Substance: TOPIRAMATE
     Indication: Migraine
     Dosage: UNK
     Route: 065
  3. ELAVIL [Concomitant]
     Active Substance: AMITRIPTYLINE HYDROCHLORIDE
     Indication: Migraine prophylaxis
     Route: 065
  4. PROPRANOLOL HYDROCHLORIDE [Concomitant]
     Active Substance: PROPRANOLOL HYDROCHLORIDE
     Indication: Migraine prophylaxis
     Route: 065
  5. TOPAMAX [Concomitant]
     Active Substance: TOPIRAMATE
     Indication: Migraine prophylaxis
     Route: 065

REACTIONS (4)
  - Bradycardia [Recovered/Resolved]
  - Disturbance in attention [Recovered/Resolved]
  - Dizziness [Recovered/Resolved]
  - Product use in unapproved indication [Recovered/Resolved]
